FAERS Safety Report 10136154 (Version 1)
Quarter: 2014Q2

REPORT INFORMATION
  Report Type: Spontaneous
  Country: US (occurrence: US)
  Receive Date: 20140429
  Receipt Date: 20140429
  Transmission Date: 20141212
  Serious: Yes (Death)
  Sender: FDA-Public Use
  Company Number: US-ROCHE-1388482

PATIENT
  Age: 95 Year
  Sex: Female

DRUGS (2)
  1. LUCENTIS [Suspect]
     Indication: MACULAR DEGENERATION
     Route: 065
  2. ASPIRIN [Concomitant]
     Indication: ATRIAL FIBRILLATION

REACTIONS (2)
  - Cerebrovascular accident [Fatal]
  - Hip fracture [Unknown]
